FAERS Safety Report 9805734 (Version 2)
Quarter: 2014Q1

REPORT INFORMATION
  Report Type: Report from Study
  Country: US (occurrence: US)
  Receive Date: 20140109
  Receipt Date: 20140109
  Transmission Date: 20141002
  Serious: Yes (Other)
  Sender: FDA-Public Use
  Company Number: PHEH2013US013423

PATIENT
  Age: 23 Year
  Sex: Female

DRUGS (6)
  1. AFINITOR [Suspect]
     Indication: ANGIOMYOLIPOMA
     Dosage: 10 MG, DAILY
     Route: 048
     Dates: start: 20130225
  2. AFINITOR [Suspect]
     Dosage: 15 MG, DAILY
     Route: 048
  3. ABILIFY [Suspect]
     Indication: BIPOLAR DISORDER
  4. TEGRETOL [Concomitant]
     Indication: CONVULSION
     Dosage: 600 MG, TID
  5. GEODON [Concomitant]
     Indication: BIPOLAR DISORDER
     Dosage: 60 MG, BID
  6. FISH OIL [Concomitant]
     Dosage: 100 IU

REACTIONS (7)
  - Road traffic accident [Recovered/Resolved]
  - Bronchitis [Recovered/Resolved]
  - Contusion [Unknown]
  - Weight increased [Unknown]
  - Pain in extremity [Unknown]
  - Drug ineffective [Unknown]
  - Lipids increased [Unknown]
